FAERS Safety Report 10509789 (Version 1)
Quarter: 2014Q4

REPORT INFORMATION
  Report Type: Spontaneous
  Country: US (occurrence: US)
  Receive Date: 20141010
  Receipt Date: 20141010
  Transmission Date: 20150528
  Serious: No
  Sender: FDA-Public Use
  Company Number: US-BIOGENIDEC-2014BI103124

PATIENT
  Age: 65 Year
  Sex: Female

DRUGS (4)
  1. TECFIDERA [Suspect]
     Active Substance: DIMETHYL FUMARATE
     Indication: MULTIPLE SCLEROSIS
     Route: 048
  2. NEURONTIN [Concomitant]
     Active Substance: GABAPENTIN
  3. LASIX [Concomitant]
     Active Substance: FUROSEMIDE
  4. DULOXETINE [Concomitant]
     Active Substance: DULOXETINE

REACTIONS (1)
  - Dry eye [Unknown]
